FAERS Safety Report 24105395 (Version 1)
Quarter: 2024Q3

REPORT INFORMATION
  Report Type: Spontaneous
  Country: RO (occurrence: RO)
  Receive Date: 20240717
  Receipt Date: 20240717
  Transmission Date: 20241017
  Serious: Yes (Life-Threatening)
  Sender: MERCK
  Company Number: RO-009507513-2407ROU007625

PATIENT
  Age: 83 Year
  Sex: Male

DRUGS (1)
  1. PEMBROLIZUMAB [Suspect]
     Active Substance: PEMBROLIZUMAB

REACTIONS (2)
  - Myositis [Not Recovered/Not Resolved]
  - Oesophageal disorder [Not Recovered/Not Resolved]
